FAERS Safety Report 16296858 (Version 1)
Quarter: 2019Q2

REPORT INFORMATION
  Report Type: Spontaneous
  Country: US (occurrence: US)
  Receive Date: 20190504
  Receipt Date: 20190504
  Transmission Date: 20190711
  Serious: No
  Sender: FDA-Public Use
  Company Number: None

PATIENT
  Age: 69 Year
  Sex: Female
  Weight: 60.75 kg

DRUGS (1)
  1. NEILMED SINUS RINSE [Suspect]
     Active Substance: SODIUM BICARBONATE\SODIUM CHLORIDE
     Indication: SINUS CONGESTION
     Dosage: ?          OTHER STRENGTH:UNKNOWN;QUANTITY:1 50;OTHER ROUTE:NASAL SPRAY?
     Dates: start: 20190428, end: 20190429

REACTIONS (3)
  - Sinus pain [None]
  - Product quality issue [None]
  - Burning sensation [None]

NARRATIVE: CASE EVENT DATE: 20190428
